FAERS Safety Report 7668030-4 (Version None)
Quarter: 2011Q3

REPORT INFORMATION
  Report Type: 
  Country: None (occurrence: None)
  Receive Date: 20110808
  Receipt Date: 20110802
  Transmission Date: 20111222
  Serious: No
  Sender: FDA-Public Use
  Company Number: US-PFIZER INC-2011177229

PATIENT
  Sex: Female
  Weight: 52.608 kg

DRUGS (5)
  1. ACTONEL [Concomitant]
     Dosage: UNK
  2. PROAIR HFA [Concomitant]
     Indication: ASTHMA
  3. ADVAIR DISKUS 100/50 [Concomitant]
     Indication: ASTHMA
     Dosage: UNK
  4. ALBUTEROL [Concomitant]
     Indication: ASTHMA
     Dosage: UNK
  5. PREMARIN [Suspect]
     Indication: VULVOVAGINAL DRYNESS
     Dosage: UNK, ALTERNATE DAYS
     Dates: start: 20110101

REACTIONS (2)
  - VULVOVAGINAL DISCOMFORT [None]
  - VULVOVAGINAL PRURITUS [None]
